FAERS Safety Report 6636109-1 (Version None)
Quarter: 2010Q1

REPORT INFORMATION
  Report Type: 
  Country: None (occurrence: None)
  Receive Date: 20100309
  Receipt Date: 20100224
  Transmission Date: 20100710
  Serious: Yes (Hospitalization)
  Sender: FDA-Public Use
  Company Number: 230337J10BRA

PATIENT
  Age: 20 Year
  Sex: Male

DRUGS (3)
  1. REBIF [Suspect]
     Indication: RELAPSING-REMITTING MULTIPLE SCLEROSIS
     Dosage: 44 MCG, 3 IN 1 WEEKS, 44 MCG, 3 IN 1 WEEKS, 44 MCG, 3 IN 1 WEEKS
     Dates: start: 20081201, end: 20091201
  2. REBIF [Suspect]
     Indication: RELAPSING-REMITTING MULTIPLE SCLEROSIS
     Dosage: 44 MCG, 3 IN 1 WEEKS, 44 MCG, 3 IN 1 WEEKS, 44 MCG, 3 IN 1 WEEKS
     Dates: start: 20091201, end: 20100101
  3. REBIF [Suspect]
     Indication: RELAPSING-REMITTING MULTIPLE SCLEROSIS
     Dosage: 44 MCG, 3 IN 1 WEEKS, 44 MCG, 3 IN 1 WEEKS, 44 MCG, 3 IN 1 WEEKS
     Dates: start: 20100101

REACTIONS (2)
  - NO THERAPEUTIC RESPONSE [None]
  - SENSORY LOSS [None]
